FAERS Safety Report 5501646-X (Version None)
Quarter: 2007Q4

REPORT INFORMATION
  Report Type: 
  Country: None (occurrence: None)
  Receive Date: 20071026
  Receipt Date: 20071022
  Transmission Date: 20080405
  Serious: Yes (Life-Threatening, Hospitalization, Disabling)
  Sender: FDA-Public Use
  Company Number: TPA2007A01026

PATIENT
  Age: 86 Year
  Sex: Male
  Weight: 79.3795 kg

DRUGS (7)
  1. ACTOS [Suspect]
     Indication: TYPE 2 DIABETES MELLITUS
     Dosage: 45 MG, 1 IN 1 D, PER ORAL
     Route: 048
     Dates: start: 20060104
  2. GLYBURIDE [Concomitant]
  3. PROZAC [Concomitant]
  4. LOVASTATIN [Concomitant]
  5. METFORMIN HCL [Concomitant]
  6. LISINOPRIL [Concomitant]
  7. FLOMAX [Concomitant]

REACTIONS (6)
  - DEAFNESS [None]
  - FALL [None]
  - HAEMORRHAGE [None]
  - HAEMORRHAGE INTRACRANIAL [None]
  - HEAD INJURY [None]
  - SUBDURAL HAEMATOMA [None]
